FAERS Safety Report 19194918 (Version 2)
Quarter: 2021Q2

REPORT INFORMATION
  Report Type: Spontaneous
  Country: JP (occurrence: JP)
  Receive Date: 20210429
  Receipt Date: 20210609
  Transmission Date: 20210717
  Serious: Yes (Other)
  Sender: FDA-Public Use
  Company Number: JP-TAKEDA-2021TUS026458

PATIENT
  Age: 38 Year
  Sex: Male

DRUGS (9)
  1. STRATTERA [Concomitant]
     Active Substance: ATOMOXETINE HYDROCHLORIDE
     Dosage: 40 MILLIGRAM, QD
  2. ALLEGRA [Concomitant]
     Active Substance: FEXOFENADINE HYDROCHLORIDE
     Dosage: 120 MILLIGRAM, QD
  3. INTUNIV [Suspect]
     Active Substance: GUANFACINE HYDROCHLORIDE
     Indication: ATTENTION DEFICIT HYPERACTIVITY DISORDER
     Dosage: 1 MILLIGRAM, QD
     Route: 048
     Dates: start: 20210109, end: 20210417
  4. TOPINA [Concomitant]
     Active Substance: TOPIRAMATE
     Dosage: 50 MILLIGRAM, QD
  5. DEPAKENE?R [Concomitant]
     Active Substance: VALPROATE SODIUM
     Dosage: 800 MILLIGRAM, QD
  6. LEXOTAN [Concomitant]
     Active Substance: BROMAZEPAM
     Dosage: 2 DOSAGE FORM, QD
  7. TRANCOLON [Concomitant]
     Active Substance: MEPENZOLATE BROMIDE
     Dosage: 22.5 MILLIGRAM, QD
  8. LENDORMIN [Concomitant]
     Active Substance: BROTIZOLAM
     Dosage: 0.25 MILLIGRAM, QD
  9. TERNELIN [Concomitant]
     Active Substance: TIZANIDINE
     Dosage: 1 MILLIGRAM, QD

REACTIONS (5)
  - Memory impairment [Not Recovered/Not Resolved]
  - Amnesia [Recovered/Resolved]
  - Depressed level of consciousness [Not Recovered/Not Resolved]
  - Feeling abnormal [Unknown]
  - Dizziness [Not Recovered/Not Resolved]

NARRATIVE: CASE EVENT DATE: 202101
